FAERS Safety Report 20650946 (Version 1)
Quarter: 2022Q1

REPORT INFORMATION
  Report Type: Spontaneous
  Country: RS (occurrence: RS)
  Receive Date: 20220329
  Receipt Date: 20220329
  Transmission Date: 20220423
  Serious: Yes (Death, Other)
  Sender: FDA-Public Use
  Company Number: RS-009507513-2203SRB008745

PATIENT
  Age: 42 Year
  Sex: Male

DRUGS (1)
  1. KEYTRUDA [Suspect]
     Active Substance: PEMBROLIZUMAB
     Indication: Malignant melanoma
     Dosage: 42 CYCLES
     Dates: start: 20160915, end: 20190915

REACTIONS (7)
  - Death [Fatal]
  - Malignant neoplasm progression [Unknown]
  - Latent autoimmune diabetes in adults [Unknown]
  - Therapy partial responder [Unknown]
  - Vasculitis [Unknown]
  - Vitiligo [Unknown]
  - Colitis [Unknown]

NARRATIVE: CASE EVENT DATE: 20210326
